FAERS Safety Report 5545472-4 (Version None)
Quarter: 2007Q4

REPORT INFORMATION
  Report Type: 
  Country: None (occurrence: None)
  Receive Date: 20071211
  Receipt Date: 20071127
  Transmission Date: 20080405
  Serious: Yes (Other)
  Sender: FDA-Public Use
  Company Number: CA-ELI_LILLY_AND_COMPANY-CA200711006721

PATIENT
  Age: 38 Year
  Sex: Male

DRUGS (1)
  1. CIALIS [Suspect]
     Dosage: 20 MG, AS NEEDED
     Dates: start: 20060101

REACTIONS (3)
  - BLINDNESS UNILATERAL [None]
  - OCULAR VASCULAR DISORDER [None]
  - VISUAL FIELD DEFECT [None]
